FAERS Safety Report 5099672-0 (Version None)
Quarter: 2006Q3

REPORT INFORMATION
  Report Type: 
  Country: None (occurrence: None)
  Receive Date: 20060908
  Receipt Date: 20060822
  Transmission Date: 20061208
  Serious: Yes (Death)
  Sender: FDA-Public Use
  Company Number: JP-AVENTIS-200612620JP

PATIENT

DRUGS (1)
  1. LANTUS [Suspect]
     Indication: DIABETES MELLITUS INSULIN-DEPENDENT
     Route: 058

REACTIONS (4)
  - BRAIN NEOPLASM MALIGNANT [None]
  - DRUG EXPOSURE DURING PREGNANCY [None]
  - FOETAL CARDIAC DISORDER [None]
  - INTRA-UTERINE DEATH [None]
